FAERS Safety Report 22319132 (Version 2)
Quarter: 2025Q2

REPORT INFORMATION
  Report Type: Report from Study
  Country: JP (occurrence: JP)
  Receive Date: 20230515
  Receipt Date: 20250515
  Transmission Date: 20250716
  Serious: Yes (Death)
  Sender: GILEAD
  Company Number: JP-GILEAD-2023-0627825

PATIENT

DRUGS (2)
  1. REMDESIVIR [Suspect]
     Active Substance: REMDESIVIR
     Indication: COVID-19
     Route: 065
     Dates: start: 2022, end: 2022
  2. REMDESIVIR [Suspect]
     Active Substance: REMDESIVIR
     Route: 065
     Dates: start: 2022, end: 2022

REACTIONS (2)
  - Lung disorder [Fatal]
  - Intentional product use issue [Unknown]

NARRATIVE: CASE EVENT DATE: 20220101
